FAERS Safety Report 17002335 (Version 1)
Quarter: 2019Q4

REPORT INFORMATION
  Report Type: Spontaneous
  Country: GB (occurrence: GB)
  Receive Date: 20191106
  Receipt Date: 20191106
  Transmission Date: 20200122
  Serious: Yes (Other)
  Sender: FDA-Public Use
  Company Number: GB-B.I. PHARMACEUTICALS,INC./RIDGEFIELD-2019-12-110949

PATIENT
  Age: 42 Year
  Sex: Male
  Weight: 74.3 kg

DRUGS (41)
  1. SIFROL [Suspect]
     Active Substance: PRAMIPEXOLE
     Indication: RESTLESS LEGS SYNDROME
     Dosage: INITIALLY ONE PER DAY AT NIGHT, INCREASING TO 2 CAPSULES PER DAY AT NIGHT AFTER TWO WEEKS
     Route: 065
     Dates: start: 20180220, end: 20180306
  2. CANDESARTAN. [Concomitant]
     Active Substance: CANDESARTAN
     Indication: MIGRAINE
     Dosage: EACH MORNING
     Route: 065
  3. LACTULOSE. [Concomitant]
     Active Substance: LACTULOSE
     Indication: IRRITABLE BOWEL SYNDROME
     Dosage: 3.3G/5ML. 10-15ML; AS REQUIRED
     Route: 065
  4. IBUPROFEN. [Concomitant]
     Active Substance: IBUPROFEN
     Dosage: APPLY TO AFFECTED AREAS
     Route: 065
  5. SALMETEROL XINAFOATE [Concomitant]
     Active Substance: SALMETEROL XINAFOATE
     Indication: ASTHMA
     Route: 065
  6. DAKTACORT [Concomitant]
     Active Substance: HYDROCORTISONE\MICONAZOLE NITRATE
     Indication: PRODUCT USED FOR UNKNOWN INDICATION
     Dosage: APPLIED TO KNEE AND LEG TWICE A DAY; AS REQUIRED
     Route: 065
  7. LOPERAMIDE HYDROCHLORIDE. [Concomitant]
     Active Substance: LOPERAMIDE HYDROCHLORIDE
     Indication: IRRITABLE BOWEL SYNDROME
     Dosage: 2MG. 1 OR 2; AS REQUIRED
     Route: 065
  8. AVAMYS [Concomitant]
     Active Substance: FLUTICASONE FUROATE
     Indication: RHINITIS ALLERGIC
     Dosage: EACH NOSTRIL
     Route: 065
  9. SODIUM VALPROATE [Concomitant]
     Active Substance: VALPROATE SODIUM
     Indication: MIGRAINE
     Dosage: 2 IN MORNING, 2 AT NIGHT
     Route: 065
  10. IBUPROFEN. [Concomitant]
     Active Substance: IBUPROFEN
     Indication: PRODUCT USED FOR UNKNOWN INDICATION
     Dosage: 400MG 3 TO 4 TIMES A DAY; AS REQUIRED
     Route: 065
  11. HYOSCINE BUTYLBROMIDE [Concomitant]
     Active Substance: BUTYLSCOPOLAMINE BROMIDE
     Indication: IRRITABLE BOWEL SYNDROME
     Dosage: 10MG. 2 TABLETS 4 TIMES A DAY THEN FOR AN EXTRA 2 WEEKS AFTER IBS SETTLES DOWN
     Route: 065
  12. FOLIC ACID. [Concomitant]
     Active Substance: FOLIC ACID
     Indication: ANAEMIA
     Dosage: FOR 4 MONTHS
     Dates: start: 20180321
  13. SCHERIPROCT [Concomitant]
     Active Substance: DIBUCAINE HYDROCHLORIDE\PREDNISOLONE
     Indication: PRODUCT USED FOR UNKNOWN INDICATION
     Route: 065
  14. ADCAL-D3 [Concomitant]
     Active Substance: CALCIUM CARBONATE\CHOLECALCIFEROL
     Indication: OSTEOARTHRITIS
     Dosage: 750MG/200 2 TWICE A DAY SEVEN DAYS A WEEK
     Route: 065
  15. FYBOGEL [Concomitant]
     Active Substance: PLANTAGO OVATA SEED
     Indication: IRRITABLE BOWEL SYNDROME
     Dosage: 1 SACHET ONCE OR TWICE PER DAY
     Route: 065
  16. BUPIVACAINE. [Concomitant]
     Active Substance: BUPIVACAINE
     Indication: MIGRAINE
     Dosage: ; AS REQUIRED
     Route: 065
     Dates: start: 20170802, end: 20180208
  17. FERROUS SULFATE. [Concomitant]
     Active Substance: FERROUS SULFATE
     Indication: FOLATE DEFICIENCY
     Dosage: FOR 8 MONTHS
     Route: 065
     Dates: start: 20180420
  18. DOMPERIDONE [Concomitant]
     Active Substance: DOMPERIDONE
     Indication: GASTROOESOPHAGEAL REFLUX DISEASE
     Dosage: 10MG. BETWEEN 2 AND 4 TIMES DAILY
     Route: 065
  19. GABAPENTIN. [Concomitant]
     Active Substance: GABAPENTIN
     Indication: RESTLESS LEGS SYNDROME
     Dosage: AT BEDTIME
     Route: 065
  20. ESOMEPRAZOLE. [Concomitant]
     Active Substance: ESOMEPRAZOLE MAGNESIUM
     Indication: GASTROOESOPHAGEAL REFLUX DISEASE
     Route: 065
  21. ZOLEDRONIC ACID [Concomitant]
     Active Substance: ZOLEDRONIC ACID
     Indication: OSTEOARTHRITIS
     Dosage: 5MG/100ML
     Route: 065
     Dates: start: 20130122, end: 20150120
  22. SPIRIVA [Concomitant]
     Active Substance: TIOTROPIUM BROMIDE MONOHYDRATE
     Indication: ASTHMA
     Dosage: 18MCG INHALATION POWDER. INHALE 1 CAPSULE PER DAY DURING FLARE-UPS AND FOR FOUR WEEKS AFTERWARDS;...
     Route: 065
  23. GAVISCON ADVANCE [Concomitant]
     Active Substance: POTASSIUM BICARBONATE\SODIUM ALGINATE
     Indication: GASTROOESOPHAGEAL REFLUX DISEASE
     Dosage: 5ML 3 TIMES A DAY. 10ML AT NIGHT; AS REQUIRED
     Route: 065
  24. SALBUTAMOL [Concomitant]
     Active Substance: ALBUTEROL
     Indication: ASTHMA
     Dosage: 100MCG 2-4 DOSES; AS REQUIRED
     Route: 065
  25. HYDROXOCOBALAMIN [Concomitant]
     Active Substance: HYDROXOCOBALAMIN
     Indication: FOLATE DEFICIENCY
     Dosage: 5 INJECTIONS IN TOTAL
     Route: 030
     Dates: start: 20180305, end: 20180314
  26. BOTOX [Concomitant]
     Active Substance: ONABOTULINUMTOXINA
     Indication: MIGRAINE
     Route: 065
     Dates: start: 20141015, end: 20171220
  27. NARAMIG [Concomitant]
     Active Substance: NARATRIPTAN HYDROCHLORIDE
     Indication: MIGRAINE
     Dosage: AT START OF MIGRAINE; AS REQUIRED
  28. GLUCOSAMINE WITH CHONDROITIN [Concomitant]
     Indication: PRODUCT USED FOR UNKNOWN INDICATION
     Dosage: 500MG/400MG 1 3 TIMES DAY
     Route: 065
  29. VENTOLIN [Concomitant]
     Active Substance: ALBUTEROL SULFATE
     Indication: ASTHMA
     Dosage: 2.5MG 1 UP TO FOUR TIMES PER DAY THROUGH NEBULISER; AS REQUIRED
     Route: 065
  30. SIFROL [Suspect]
     Active Substance: PRAMIPEXOLE
     Dosage: INITIALLY ONE PER DAY AT NIGHT, INCREASING TO 2 CAPSULES PER DAY AT NIGHT AFTER TWO WEEKS
     Route: 065
     Dates: start: 20180307, end: 20180501
  31. CAPSAICIN. [Concomitant]
     Active Substance: CAPSAICIN
     Indication: PRODUCT USED FOR UNKNOWN INDICATION
     Dosage: 0.075% APPLY TO PAINFUL AREAS UP TO 3 TIMES A DAY; AS REQUIRED
     Route: 065
  32. COCODAMOL [Concomitant]
     Active Substance: ACETAMINOPHEN\CODEINE PHOSPHATE
     Dosage: 30MG/500MG 2 TABLETS 4 TIMES A DAY; AS REQUIRED
     Route: 065
  33. PROBIOTIC [Concomitant]
     Active Substance: PROBIOTICS NOS
     Indication: PRODUCT USED FOR UNKNOWN INDICATION
     Dosage: WITH FOOD
     Route: 065
  34. MONTELUKAST [Concomitant]
     Active Substance: MONTELUKAST SODIUM
     Indication: ASTHMA
     Dosage: AT NIGHT
     Route: 065
  35. RANITIDINE. [Concomitant]
     Active Substance: RANITIDINE
     Indication: GASTROOESOPHAGEAL REFLUX DISEASE
     Route: 065
  36. CHLORPHENAMINE MALEATE [Concomitant]
     Active Substance: CHLORPHENIRAMINE MALEATE
     Indication: SEASONAL ALLERGY
     Route: 065
  37. FLUTICASONE. [Concomitant]
     Active Substance: FLUTICASONE
     Indication: ASTHMA
     Dosage: ADDITIONAL INFO: IN EMERGENCY INHALE 4 DOSES TWICE A DAY
     Route: 055
  38. KENALOG [SALICYLIC ACID;TRIAMCINOLONE ACETONIDE] [Concomitant]
     Indication: MIGRAINE
     Dosage: ADMINISTERED UP TO 4 TIMES PER YEAR
     Route: 065
     Dates: start: 20170802, end: 20180208
  39. SODIUM CROMOGLICATE [Concomitant]
     Active Substance: CROMOLYN SODIUM
     Indication: RHINITIS ALLERGIC
     Dosage: 1 DROP PER EYE UP TO 4 TIMES DAILY; AS REQUIRED
     Route: 065
  40. CYCLIZINE [Concomitant]
     Active Substance: CYCLIZINE
     Indication: MIGRAINE
     Dosage: 50MG 1 TO BE TAKEN 3 TIMES A DAY DURING A MIGRAINE ATTACK; AS REQUIRED
     Route: 065
  41. MEBEVERINE [Concomitant]
     Active Substance: MEBEVERINE
     Indication: IRRITABLE BOWEL SYNDROME
     Route: 065

REACTIONS (5)
  - Restless legs syndrome [Recovering/Resolving]
  - Mood swings [Recovering/Resolving]
  - Condition aggravated [Recovering/Resolving]
  - Dehydration [Recovering/Resolving]
  - Tremor [Recovering/Resolving]
